FAERS Safety Report 7465403-X (Version None)
Quarter: 2011Q2

REPORT INFORMATION
  Report Type: 
  Country: None (occurrence: None)
  Receive Date: 20110509
  Receipt Date: 20100629
  Transmission Date: 20111010
  Serious: No
  Sender: FDA-Public Use
  Company Number: US-BAUSCH-2010BL003546

PATIENT
  Age: 57 Year
  Sex: Male

DRUGS (4)
  1. LOTEMAX [Suspect]
     Indication: LACRIMATION INCREASED
     Route: 047
     Dates: start: 20070101
  2. LOTEMAX [Suspect]
     Indication: OCULAR HYPERAEMIA
     Route: 047
     Dates: start: 20070101
  3. LIPITOR [Concomitant]
     Indication: BLOOD CHOLESTEROL INCREASED
     Route: 048
  4. LOTEMAX [Suspect]
     Indication: EYE DISORDER
     Route: 047
     Dates: start: 20070101

REACTIONS (4)
  - OCULAR HYPERAEMIA [None]
  - MEDICATION RESIDUE [None]
  - EYE PAIN [None]
  - CONDITION AGGRAVATED [None]
